FAERS Safety Report 9544251 (Version 1)
Quarter: 2013Q3

REPORT INFORMATION
  Report Type: Spontaneous
  Country: BR (occurrence: BR)
  Receive Date: 20130923
  Receipt Date: 20130923
  Transmission Date: 20140515
  Serious: Yes (Hospitalization)
  Sender: FDA-Public Use
  Company Number: BR-009507513-1304BRA001849

PATIENT
  Sex: Female
  Weight: 55 kg

DRUGS (1)
  1. MERCILON CONTI [Suspect]
     Indication: CONTRACEPTION
     Dosage: UNK
     Route: 048
     Dates: start: 2007

REACTIONS (3)
  - Ovarian cyst [Recovered/Resolved]
  - Oophorectomy [Unknown]
  - Uterine infection [Not Recovered/Not Resolved]
